FAERS Safety Report 5023531-2 (Version None)
Quarter: 2006Q2

REPORT INFORMATION
  Report Type: 
  Country: None (occurrence: None)
  Receive Date: 20060612
  Receipt Date: 20060608
  Transmission Date: 20061013
  Serious: Yes (Hospitalization)
  Sender: FDA-Public Use
  Company Number: FR-GLAXOSMITHKLINE-B0426860A

PATIENT
  Age: 64 Year
  Sex: Male
  Weight: 145 kg

DRUGS (4)
  1. AUGMENTIN '125' [Suspect]
     Indication: ANTIBIOTIC PROPHYLAXIS
     Dosage: 2G SINGLE DOSE
     Route: 042
     Dates: start: 20060428, end: 20060428
  2. DIPRIVAN [Concomitant]
     Route: 042
     Dates: start: 20060428, end: 20060428
  3. ULTIVA [Concomitant]
     Dosage: 23MCG SINGLE DOSE
     Route: 042
     Dates: start: 20060428, end: 20060428
  4. SEVOFLURANE [Concomitant]
     Route: 042
     Dates: start: 20060428, end: 20060428

REACTIONS (5)
  - ANAPHYLACTIC SHOCK [None]
  - BLOOD PRESSURE SYSTOLIC DECREASED [None]
  - ERYTHEMA [None]
  - OXYGEN SATURATION DECREASED [None]
  - TACHYCARDIA [None]
